FAERS Safety Report 14799462 (Version 1)
Quarter: 2018Q2

REPORT INFORMATION
  Report Type: Spontaneous
  Country: FR (occurrence: FR)
  Receive Date: 20180424
  Receipt Date: 20180424
  Transmission Date: 20180711
  Serious: Yes (Hospitalization)
  Sender: FDA-Public Use
  Company Number: FR-VIIV HEALTHCARE LIMITED-FR2018065412

PATIENT
  Age: 68 Year
  Sex: Female

DRUGS (3)
  1. ZEFFIX [Suspect]
     Active Substance: LAMIVUDINE
     Indication: CHRONIC HEPATITIS B
     Dosage: UNK
     Route: 065
  2. LASILIX [Suspect]
     Active Substance: FUROSEMIDE
     Indication: MYOCARDIAL ISCHAEMIA
     Dosage: 200 MG, UNK
     Route: 048
  3. INEXIUM [Suspect]
     Active Substance: ESOMEPRAZOLE
     Indication: PROPHYLAXIS
     Dosage: UNK
     Route: 065

REACTIONS (3)
  - Hypocalcaemia [Not Recovered/Not Resolved]
  - General physical health deterioration [Not Recovered/Not Resolved]
  - Blood parathyroid hormone increased [Not Recovered/Not Resolved]

NARRATIVE: CASE EVENT DATE: 20180312
